FAERS Safety Report 6460000-7 (Version None)
Quarter: 2009Q4

REPORT INFORMATION
  Report Type: 
  Country: None (occurrence: None)
  Receive Date: 20091129
  Receipt Date: 20091117
  Transmission Date: 20100525
  Serious: Yes (Other)
  Sender: FDA-Public Use
  Company Number: PHHY2009JP08494

PATIENT
  Sex: Female

DRUGS (10)
  1. ZOMETA [Suspect]
     Indication: METASTASES TO BONE
     Dosage: 1MG
     Route: 042
     Dates: start: 20080402
  2. ZOMETA [Suspect]
     Dosage: 1 MG
     Route: 042
     Dates: start: 20080502
  3. ZOMETA [Suspect]
     Dosage: 4 MG
     Route: 042
     Dates: start: 20080606
  4. ZOMETA [Suspect]
     Dosage: 4 MG
     Route: 042
     Dates: start: 20080704
  5. ZOMETA [Suspect]
     Dosage: 4 MG
     Route: 042
     Dates: start: 20080806
  6. ZOMETA [Suspect]
     Dosage: 4 MG
     Route: 042
     Dates: start: 20080905
  7. ZOMETA [Suspect]
     Dosage: 4 MG
     Route: 042
     Dates: end: 20081003
  8. ZOMETA [Suspect]
     Dosage: 2 MG PER ADMINISTRATION
     Route: 042
     Dates: end: 20081003
  9. ZOMETA [Suspect]
     Dosage: 2 MG, ONCE/SINGLE
     Route: 042
     Dates: start: 20090624, end: 20090624
  10. SUMIFERON [Concomitant]
     Dosage: UNK
     Route: 030
     Dates: start: 20070911

REACTIONS (4)
  - BLOOD CREATININE INCREASED [None]
  - BLOOD UREA INCREASED [None]
  - NEPHRECTOMY [None]
  - RENAL IMPAIRMENT [None]
